FAERS Safety Report 17006386 (Version 2)
Quarter: 2019Q4

REPORT INFORMATION
  Report Type: Spontaneous
  Country: GB (occurrence: GB)
  Receive Date: 20191107
  Receipt Date: 20191110
  Transmission Date: 20200122
  Serious: Yes (Death, Other)
  Sender: FDA-Public Use
  Company Number: GB-JNJFOC-20191104577

PATIENT
  Age: 11 Month
  Sex: Female

DRUGS (2)
  1. PARACETAMOL [Suspect]
     Active Substance: ACETAMINOPHEN
     Indication: PRODUCT USED FOR UNKNOWN INDICATION
     Dosage: UNK; CALPOL
     Route: 065
     Dates: start: 2015, end: 2015
  2. DIORALYTE /01427901/ [Suspect]
     Active Substance: DEXTROSE\ELECTROLYTES NOS
     Indication: DIARRHOEA
     Route: 065
     Dates: start: 2015, end: 2015

REACTIONS (2)
  - Sepsis [Fatal]
  - Symptom masked [Fatal]

NARRATIVE: CASE EVENT DATE: 2015
